FAERS Safety Report 7967076-6 (Version None)
Quarter: 2011Q4

REPORT INFORMATION
  Report Type: 
  Country: None (occurrence: None)
  Receive Date: 20111209
  Receipt Date: 20111128
  Transmission Date: 20120403
  Serious: Yes (Other)
  Sender: FDA-Public Use
  Company Number: 2011SP003780

PATIENT
  Sex: Female

DRUGS (1)
  1. LATUDA [Suspect]
     Route: 048
     Dates: start: 20110101

REACTIONS (1)
  - ABORTION SPONTANEOUS [None]
